FAERS Safety Report 9817315 (Version 2)
Quarter: 2014Q1

REPORT INFORMATION
  Report Type: Report from Study
  Country: BR (occurrence: BR)
  Receive Date: 20140115
  Receipt Date: 20140115
  Transmission Date: 20141002
  Serious: Yes (Hospitalization, Other)
  Sender: FDA-Public Use
  Company Number: BR-AMGEN-BRACT2012019787

PATIENT
  Age: 31 Year
  Sex: Female
  Weight: 86 kg

DRUGS (10)
  1. ETANERCEPT [Suspect]
     Indication: RHEUMATOID ARTHRITIS
     Dosage: 50 MG, QWK
     Route: 058
     Dates: start: 20110228
  2. ETANERCEPT [Suspect]
     Dosage: 50 MG, QWK
     Route: 058
     Dates: start: 201102, end: 201104
  3. ETANERCEPT [Suspect]
     Dosage: 50 MG, ONCE WEEKLY
     Route: 058
     Dates: start: 20120712, end: 201311
  4. FOLIC ACID [Concomitant]
     Dosage: UNK
  5. PREDNISONE [Concomitant]
     Dosage: 20 MG, 1X/DAY
     Route: 048
  6. METHOTREXATE [Concomitant]
     Dosage: 15 MG (6 TABLETS OF 2.5MG), ONCE WEEKLY
     Route: 048
  7. OMEPRAZOLE [Concomitant]
     Dosage: 20 MG, 1X/DAY
     Route: 048
  8. LOSARTAN [Concomitant]
     Dosage: UNK
  9. HYDROCHLOROTHIAZIDE [Concomitant]
     Dosage: UNK
  10. PIROXICAM [Concomitant]
     Dosage: UNK

REACTIONS (10)
  - Conjunctivitis [Unknown]
  - Pyrexia [Unknown]
  - Synovial cyst [Unknown]
  - Lung disorder [Unknown]
  - Dyspnoea [Unknown]
  - Back pain [Unknown]
  - Cyst [Unknown]
  - Joint swelling [Not Recovered/Not Resolved]
  - Muscle abscess [Unknown]
  - Influenza [Unknown]
